FAERS Safety Report 10967860 (Version 1)
Quarter: 2015Q1

REPORT INFORMATION
  Report Type: Spontaneous
  Country: US (occurrence: US)
  Receive Date: 20150330
  Receipt Date: 20150330
  Transmission Date: 20150721
  Serious: Yes (Hospitalization)
  Sender: FDA-Public Use
  Company Number: US-GLAXOSMITHKLINE-US2015040432

PATIENT
  Age: 55 Year
  Sex: Female

DRUGS (17)
  1. TRICOR [Concomitant]
     Active Substance: FENOFIBRATE
  2. XYZAL [Concomitant]
     Active Substance: LEVOCETIRIZINE DIHYDROCHLORIDE
  3. ATENOLOL. [Concomitant]
     Active Substance: ATENOLOL
  4. IRON [Concomitant]
     Active Substance: IRON
  5. TEMAZEPAM. [Concomitant]
     Active Substance: TEMAZEPAM
  6. ADVAIR DISKUS [Suspect]
     Active Substance: FLUTICASONE PROPIONATE\SALMETEROL XINAFOATE
     Indication: ASTHMA
  7. PRAVACHOL [Concomitant]
     Active Substance: PRAVASTATIN SODIUM
  8. NORCO [Concomitant]
     Active Substance: ACETAMINOPHEN\HYDROCODONE BITARTRATE
  9. METFORMIN [Concomitant]
     Active Substance: METFORMIN HYDROCHLORIDE
  10. TOPIRAMATE. [Concomitant]
     Active Substance: TOPIRAMATE
  11. ALDACTAZIDE [Concomitant]
     Active Substance: HYDROCHLOROTHIAZIDE\SPIRONOLACTONE
  12. LASIX [Concomitant]
     Active Substance: FUROSEMIDE
  13. ADVAIR DISKUS [Suspect]
     Active Substance: FLUTICASONE PROPIONATE\SALMETEROL XINAFOATE
     Indication: CHRONIC OBSTRUCTIVE PULMONARY DISEASE
     Dosage: 1 PUFF(S), BID
     Route: 055
     Dates: start: 2013
  14. METFORMIN [Suspect]
     Active Substance: METFORMIN HYDROCHLORIDE
     Indication: PRODUCT USED FOR UNKNOWN INDICATION
     Dosage: UNK, U
  15. PROAIR HFA [Concomitant]
     Active Substance: ALBUTEROL SULFATE
  16. PAXIL [Concomitant]
     Active Substance: PAROXETINE HYDROCHLORIDE
  17. PRILOSEC [Concomitant]
     Active Substance: OMEPRAZOLE MAGNESIUM

REACTIONS (9)
  - Medication error [Unknown]
  - Chest discomfort [Not Recovered/Not Resolved]
  - Asthma [Recovered/Resolved]
  - Device use error [Unknown]
  - Diarrhoea [Not Recovered/Not Resolved]
  - Foot fracture [Recovered/Resolved]
  - Wheezing [Not Recovered/Not Resolved]
  - Pain [Recovered/Resolved]
  - Fall [Unknown]

NARRATIVE: CASE EVENT DATE: 20150324
